FAERS Safety Report 4815413-3 (Version None)
Quarter: 2005Q4

REPORT INFORMATION
  Report Type: 
  Country: None (occurrence: None)
  Receive Date: 20051027
  Receipt Date: 20030902
  Transmission Date: 20060501
  Serious: Yes (Hospitalization)
  Sender: FDA-Public Use
  Company Number: 030025

PATIENT
  Age: 79 Year
  Sex: Female

DRUGS (1)
  1. GOLYTELY [Suspect]
     Indication: COLONOSCOPY
     Dosage: 4 LITERS NG
     Dates: start: 20030901

REACTIONS (1)
  - VOMITING [None]
